FAERS Safety Report 12450714 (Version 1)
Quarter: 2016Q2

REPORT INFORMATION
  Report Type: Spontaneous
  Country: US (occurrence: US)
  Receive Date: 20160609
  Receipt Date: 20160609
  Transmission Date: 20160815
  Serious: No
  Sender: FDA-Public Use
  Company Number: US-BIOGEN-2016BI00244706

PATIENT
  Sex: Male

DRUGS (1)
  1. TECFIDERA [Suspect]
     Active Substance: DIMETHYL FUMARATE
     Indication: MULTIPLE SCLEROSIS
     Dates: start: 20140110

REACTIONS (13)
  - Sleep disorder [Unknown]
  - Pain in extremity [Unknown]
  - Fatigue [Unknown]
  - Pain [Unknown]
  - Sleep apnoea syndrome [Unknown]
  - Flushing [Unknown]
  - Cognitive disorder [Unknown]
  - Monoplegia [Not Recovered/Not Resolved]
  - Memory impairment [Unknown]
  - Depressed level of consciousness [Not Recovered/Not Resolved]
  - Restless legs syndrome [Not Recovered/Not Resolved]
  - Somnolence [Unknown]
  - Muscle spasms [Not Recovered/Not Resolved]
